FAERS Safety Report 8012648-6 (Version None)
Quarter: 2011Q4

REPORT INFORMATION
  Report Type: 
  Country: None (occurrence: None)
  Receive Date: 20111229
  Receipt Date: 20111221
  Transmission Date: 20120403
  Serious: Yes (Other)
  Sender: FDA-Public Use
  Company Number: US-PFIZER INC-2011312479

PATIENT
  Sex: Male

DRUGS (1)
  1. GUAIFENESIN [Suspect]

REACTIONS (1)
  - ANAPHYLACTIC REACTION [None]
